FAERS Safety Report 11682734 (Version 3)
Quarter: 2016Q1

REPORT INFORMATION
  Report Type: Report from Study
  Country: US (occurrence: US)
  Receive Date: 20151029
  Receipt Date: 20160322
  Transmission Date: 20160525
  Serious: No
  Sender: FDA-Public Use
  Company Number: PHEH2015US021964

PATIENT
  Age: 51 Year
  Sex: Female

DRUGS (1)
  1. GILENYA [Suspect]
     Active Substance: FINGOLIMOD HYDROCHLORIDE
     Indication: MULTIPLE SCLEROSIS
     Dosage: 0.5 MG, QD
     Route: 048
     Dates: start: 20151026

REACTIONS (4)
  - Feeling abnormal [Recovered/Resolved]
  - Heart rate decreased [Recovered/Resolved]
  - Headache [Recovered/Resolved]
  - Stress [Recovered/Resolved]

NARRATIVE: CASE EVENT DATE: 20151026
